FAERS Safety Report 7688129-6 (Version None)
Quarter: 2011Q3

REPORT INFORMATION
  Report Type: 
  Country: None (occurrence: None)
  Receive Date: 20110817
  Receipt Date: 20110804
  Transmission Date: 20111222
  Serious: Yes (Other)
  Sender: FDA-Public Use
  Company Number: BR-ELI_LILLY_AND_COMPANY-BR201105007755

PATIENT
  Age: 51 Year
  Sex: Male

DRUGS (1)
  1. ZYPREXA [Suspect]
     Indication: HUNTINGTON'S DISEASE
     Dosage: UNK, UNKNOWN
     Route: 065
     Dates: start: 20110401, end: 20110401

REACTIONS (3)
  - TONGUE GEOGRAPHIC [None]
  - LARYNGEAL OEDEMA [None]
  - TACHYCARDIA [None]
